FAERS Safety Report 7278832-4 (Version None)
Quarter: 2010Q4

REPORT INFORMATION
  Report Type: 
  Country: None (occurrence: None)
  Receive Date: 20101201
  Receipt Date: 20100826
  Transmission Date: 20110411
  Serious: Yes (Other)
  Sender: FDA-Public Use
  Company Number: 10-001270

PATIENT
  Sex: Female

DRUGS (2)
  1. FEMHRT [Suspect]
  2. PREMPRO [Suspect]

REACTIONS (1)
  - BREAST CANCER [None]
